FAERS Safety Report 5717077-3 (Version None)
Quarter: 2008Q2

REPORT INFORMATION
  Report Type: 
  Country: None (occurrence: None)
  Receive Date: 20080423
  Receipt Date: 20080414
  Transmission Date: 20081010
  Serious: Yes (Hospitalization)
  Sender: FDA-Public Use
  Company Number: 2008009407

PATIENT
  Age: 38 Year
  Sex: Female
  Weight: 92.9874 kg

DRUGS (1)
  1. SUDAFED 12 HOUR [Suspect]
     Indication: NASAL CONGESTION
     Dosage: 2 TABLETS ONCE (1 IN 1 D) ORAL
     Route: 048
     Dates: start: 20080328, end: 20080328

REACTIONS (1)
  - CONVULSION [None]
